FAERS Safety Report 15230047 (Version 1)
Quarter: 2018Q3

REPORT INFORMATION
  Report Type: Spontaneous
  Country: US (occurrence: US)
  Receive Date: 20180802
  Receipt Date: 20180802
  Transmission Date: 20181010
  Serious: Yes (Other)
  Sender: FDA-Public Use
  Company Number: US-ACCORD-062880

PATIENT
  Age: 52 Year
  Sex: Female
  Weight: 56.7 kg

DRUGS (11)
  1. ALOXI [Concomitant]
     Active Substance: PALONOSETRON HYDROCHLORIDE
     Dosage: STRENGTH: 0.25 MG,??FOR C2,3,4 ON 25?AUG?2011, 15?SEP?2011 AND 06?OCT?2011.
     Route: 042
     Dates: start: 20110801, end: 20111006
  2. NEULASTA [Concomitant]
     Active Substance: PEGFILGRASTIM
     Dosage: STRENGTH: 6 MG??ALSO RECEIVED C2 AND C3 ON 16?SEP?2011 AND 07?OCT?2011
     Route: 058
     Dates: start: 20110826
  3. ZIAGEN [Concomitant]
     Active Substance: ABACAVIR SULFATE
     Route: 048
     Dates: start: 2010, end: 20160915
  4. DOCETAXEL ACCORD [Suspect]
     Active Substance: DOCETAXEL
     Indication: INVASIVE DUCTAL BREAST CARCINOMA
     Dosage: STRENGTH: 75 MG/M2 DAILY,?REDUCED DOSE 100 MG FOR C2,3,4 ON 25?AUG, 15?SEP AND 06?OCT?2011.
     Route: 042
     Dates: start: 20110801, end: 20111006
  5. REYATAZ [Concomitant]
     Active Substance: ATAZANAVIR SULFATE
     Route: 048
     Dates: start: 2003, end: 20160915
  6. BENADRYL [Concomitant]
     Active Substance: DIPHENHYDRAMINE HYDROCHLORIDE
     Dosage: STRENGTH: 50 MG/ ML,???FOR C2,3,4 ON 25?AUG?2011, 15?SEP?2011 AND 06?OCT?2011.
     Route: 042
     Dates: start: 20110801, end: 20111006
  7. CYTOXAN [Suspect]
     Active Substance: CYCLOPHOSPHAMIDE
     Indication: INVASIVE DUCTAL BREAST CARCINOMA
     Dosage: STRENGTH: 600 MG/M2?REDUCED DOSE 900 MG FOR C2,3,4 ON 25?AUG, 15?SEP AND 06?OCT?2011.
     Route: 042
     Dates: start: 20110801, end: 20111006
  8. DEXAMETHASONE. [Concomitant]
     Active Substance: DEXAMETHASONE
     Indication: PREMEDICATION
     Route: 048
  9. INFED [Concomitant]
     Active Substance: IRON DEXTRAN
     Dosage: STRENGTH: 50 MG/ML??CY2 ON 15?SEP?2011
     Dates: start: 20110908
  10. NEUPOGEN [Concomitant]
     Active Substance: FILGRASTIM
     Dosage: STRENGTH: 480 MCG,  DAILY FOR 3 DAYS,??RECEIVED ON 09 AND 10?AUG?2011
     Dates: start: 20110808
  11. TRUVADA [Concomitant]
     Active Substance: EMTRICITABINE\TENOFOVIR DISOPROXIL FUMARATE
     Route: 048
     Dates: start: 2003, end: 20160915

REACTIONS (1)
  - Alopecia [Not Recovered/Not Resolved]

NARRATIVE: CASE EVENT DATE: 2011
